FAERS Safety Report 4766343-7 (Version None)
Quarter: 2005Q3

REPORT INFORMATION
  Report Type: 
  Country: None (occurrence: None)
  Receive Date: 20050909
  Receipt Date: 20050901
  Transmission Date: 20060218
  Serious: Yes (Hospitalization)
  Sender: FDA-Public Use
  Company Number: 2005-09-0059

PATIENT
  Sex: Female

DRUGS (3)
  1. TEMODAL [Suspect]
     Dosage: 150 MG/M^2 ORAL
     Route: 048
  2. ZOPHREN (ONDANSETRON) [Suspect]
  3. TRILEPTAL [Concomitant]

REACTIONS (2)
  - ANGIONEUROTIC OEDEMA [None]
  - LARYNGEAL OEDEMA [None]
